FAERS Safety Report 23824684 (Version 2)
Quarter: 2024Q2

REPORT INFORMATION
  Report Type: Spontaneous
  Country: JP (occurrence: JP)
  Receive Date: 20240507
  Receipt Date: 20240605
  Transmission Date: 20240716
  Serious: Yes (Death, Other)
  Sender: FDA-Public Use
  Company Number: JP-ASTELLAS-2024US012980

PATIENT
  Age: 73 Year
  Sex: Male

DRUGS (1)
  1. CRESEMBA [Suspect]
     Active Substance: ISAVUCONAZONIUM SULFATE
     Indication: Aspergillus infection
     Route: 048

REACTIONS (4)
  - Disease progression [Fatal]
  - Cachexia [Fatal]
  - Condition aggravated [Fatal]
  - Decreased appetite [Fatal]
